FAERS Safety Report 6636406-X (Version None)
Quarter: 2010Q1

REPORT INFORMATION
  Report Type: 
  Country: None (occurrence: None)
  Receive Date: 20100316
  Receipt Date: 20100310
  Transmission Date: 20100710
  Serious: Yes (Other)
  Sender: FDA-Public Use
  Company Number: US-ELI_LILLY_AND_COMPANY-US201003003184

PATIENT
  Sex: Male

DRUGS (3)
  1. HUMALOG [Suspect]
     Indication: TYPE 1 DIABETES MELLITUS
     Dosage: UNK, AS NEEDED
     Dates: start: 20070101
  2. HUMALOG [Suspect]
     Dosage: UNK, AS NEEDED
     Dates: start: 20051101
  3. LANTUS [Concomitant]
     Dosage: 30 U, EACH MORNING

REACTIONS (13)
  - AGITATION [None]
  - ASTHENIA [None]
  - ATTENTION DEFICIT/HYPERACTIVITY DISORDER [None]
  - BLOOD GLUCOSE DECREASED [None]
  - BLOOD GLUCOSE INCREASED [None]
  - DARK CIRCLES UNDER EYES [None]
  - DIABETIC KETOACIDOSIS [None]
  - GASTROENTERITIS VIRAL [None]
  - INCORRECT DOSE ADMINISTERED [None]
  - MALAISE [None]
  - NERVOUSNESS [None]
  - TREATMENT NONCOMPLIANCE [None]
  - VOMITING [None]
